FAERS Safety Report 7249440-6 (Version None)
Quarter: 2011Q1

REPORT INFORMATION
  Report Type: 
  Country: None (occurrence: None)
  Receive Date: 20110121
  Receipt Date: 20110121
  Transmission Date: 20110831
  Serious: Yes (Other)
  Sender: FDA-Public Use
  Company Number: None

PATIENT
  Age: 16 Year
  Sex: Female

DRUGS (2)
  1. OXY ACNE SOLUTION PACK [Suspect]
     Dates: start: 20110115, end: 20110116
  2. ZOLOFT [Concomitant]

REACTIONS (5)
  - EYE SWELLING [None]
  - LIP SWELLING [None]
  - BURNS SECOND DEGREE [None]
  - CHEMICAL BURN OF SKIN [None]
  - PRODUCT QUALITY ISSUE [None]
